FAERS Safety Report 4991075-X (Version None)
Quarter: 2006Q2

REPORT INFORMATION
  Report Type: 
  Country: None (occurrence: None)
  Receive Date: 20060503
  Receipt Date: 20050113
  Transmission Date: 20061013
  Serious: Yes (Hospitalization, Other)
  Sender: FDA-Public Use
  Company Number: US-MERCK-0501USA01805

PATIENT
  Sex: Female

DRUGS (1)
  1. VIOXX [Suspect]
     Route: 048
     Dates: start: 20020101, end: 20040901

REACTIONS (23)
  - ANGINA UNSTABLE [None]
  - ARTERIOSCLEROSIS CORONARY ARTERY [None]
  - COMPUTERISED TOMOGRAM ABNORMAL [None]
  - CORONARY ARTERY DISEASE [None]
  - DEPRESSION [None]
  - DIABETES MELLITUS NON-INSULIN-DEPENDENT [None]
  - DIABETIC MICROANGIOPATHY [None]
  - ELECTROCARDIOGRAM T WAVE INVERSION [None]
  - EXOPHTHALMOS [None]
  - GASTROOESOPHAGEAL REFLUX DISEASE [None]
  - HEADACHE [None]
  - HYPERLIPIDAEMIA [None]
  - HYSTERECTOMY [None]
  - IRRITABLE BOWEL SYNDROME [None]
  - MIGRAINE [None]
  - MYOCARDIAL INFARCTION [None]
  - NAUSEA [None]
  - NECK PAIN [None]
  - OESOPHAGEAL ULCER [None]
  - PARAESTHESIA [None]
  - REFRACTORY ANAEMIA [None]
  - THROMBOCYTHAEMIA [None]
  - VOMITING [None]
